FAERS Safety Report 7187058-4 (Version None)
Quarter: 2010Q4

REPORT INFORMATION
  Report Type: 
  Country: None (occurrence: None)
  Receive Date: 20101222
  Receipt Date: 20101215
  Transmission Date: 20110411
  Serious: Yes (Other)
  Sender: FDA-Public Use
  Company Number: US-PFIZER INC-2010173400

PATIENT

DRUGS (2)
  1. EFFEXOR XR [Suspect]
  2. PROTONIX [Suspect]

REACTIONS (1)
  - HYPERTENSION [None]
